FAERS Safety Report 15746666 (Version 2)
Quarter: 2019Q2

REPORT INFORMATION
  Report Type: Spontaneous
  Country: US (occurrence: US)
  Receive Date: 20181220
  Receipt Date: 20190406
  Transmission Date: 20190711
  Serious: Yes (Hospitalization, Other)
  Sender: FDA-Public Use
  Company Number: US-PRINSTON PHARMACEUTICAL INC.-2018PRN01289

PATIENT
  Sex: Female
  Weight: 65.31 kg

DRUGS (10)
  1. UNKNOWN INCONTINENCE MEDICATION [Concomitant]
  2. VALSARTAN. [Suspect]
     Active Substance: VALSARTAN
     Indication: HYPERTENSION
     Dosage: 80 MG, 1X/DAY
     Route: 048
     Dates: end: 2018
  3. UNKNOWN NARCOTICS [Concomitant]
     Active Substance: UNSPECIFIED INGREDIENT
  4. UNKNOWN IBS (IRRITABLE BOWEL SYNDROME) MEDICATION [Concomitant]
  5. UNKNOWN GERD (GASTROESOPHAGEAL REFULX DISEASE) MEDICATION [Concomitant]
  6. LOSARTAN POTASSIUM. [Suspect]
     Active Substance: LOSARTAN POTASSIUM
     Dosage: UNK
     Dates: start: 2018
  7. UNKNOWN BLOOD THINNERS [Concomitant]
  8. UNKNOWN EPILEPSY MEDICATION [Concomitant]
  9. UNKNOWN ABDOMINAL PAIN MEDICATION [Concomitant]
  10. UNKNOWN CROHN^S MEDICATION [Concomitant]
     Active Substance: UNSPECIFIED INGREDIENT

REACTIONS (9)
  - Dizziness [Not Recovered/Not Resolved]
  - Musculoskeletal chest pain [Not Recovered/Not Resolved]
  - Blood triglycerides increased [Unknown]
  - Neuropathy peripheral [Not Recovered/Not Resolved]
  - Hypotension [Unknown]
  - Blood pressure increased [Recovered/Resolved]
  - Migraine [Not Recovered/Not Resolved]
  - Malaise [Not Recovered/Not Resolved]
  - Recalled product administered [Not Recovered/Not Resolved]

NARRATIVE: CASE EVENT DATE: 2017
